FAERS Safety Report 25020056 (Version 4)
Quarter: 2025Q2

REPORT INFORMATION
  Report Type: Spontaneous
  Country: JP (occurrence: JP)
  Receive Date: 20250227
  Receipt Date: 20250430
  Transmission Date: 20250716
  Serious: No
  Sender: MERCK SHARP & DOHME LLC
  Company Number: JP-009507513-2259166

PATIENT
  Age: 16 Year
  Sex: Male

DRUGS (5)
  1. LAGEVRIO [Suspect]
     Active Substance: MOLNUPIRAVIR
     Indication: COVID-19 treatment
     Dosage: 800 MG, EVERY 2 DAYS, STRENGTH: 200 MG
     Route: 048
     Dates: start: 202412, end: 202412
  2. ACETAMINOPHEN [Concomitant]
     Active Substance: ACETAMINOPHEN
     Indication: Pyrexia
     Dates: start: 20241216
  3. Asverin [Concomitant]
     Indication: Cough
     Dates: start: 20241216
  4. CLEMASTINE [Concomitant]
     Active Substance: CLEMASTINE
     Indication: Rhinorrhoea
     Dates: start: 20241216
  5. ENSITRELVIR FUMARATE [Suspect]
     Active Substance: ENSITRELVIR FUMARATE
     Indication: COVID-19

REACTIONS (3)
  - Nasopharyngitis [Recovered/Resolved]
  - Wrong product administered [Unknown]
  - Product prescribing error [Unknown]

NARRATIVE: CASE EVENT DATE: 20241201
